FAERS Safety Report 24313024 (Version 2)
Quarter: 2024Q3

REPORT INFORMATION
  Report Type: Spontaneous
  Country: FR (occurrence: FR)
  Receive Date: 20240912
  Receipt Date: 20240919
  Transmission Date: 20241016
  Serious: Yes (Other)
  Sender: SANOFI AVENTIS
  Company Number: FR-EMA-20131126-ssharmap-155828973

PATIENT
  Sex: Female

DRUGS (5)
  1. PREDNISONE [Suspect]
     Active Substance: PREDNISONE
     Dosage: 5 MG, QD
  2. ANTI-THYMOCYTE GLOBULIN (RABBIT) NOS [Suspect]
     Active Substance: LAPINE T-LYMPHOCYTE IMMUNE GLOBULIN
     Dosage: UNK
  3. TACROLIMUS [Suspect]
     Active Substance: TACROLIMUS
     Dosage: UNK
  4. SIROLIMUS [Suspect]
     Active Substance: SIROLIMUS
     Dosage: UNK
     Dates: start: 2006
  5. MYCOPHENOLATE MOFETIL [Suspect]
     Active Substance: MYCOPHENOLATE MOFETIL
     Dosage: 1500 MG, QD

REACTIONS (11)
  - Cervix carcinoma stage 0 [Unknown]
  - Cholangitis [Unknown]
  - Inflammation [Unknown]
  - Thrombotic microangiopathy [Unknown]
  - Renal impairment [Recovering/Resolving]
  - Papilloma viral infection [Unknown]
  - Blood triglycerides increased [Recovered/Resolved]
  - Lipids increased [Recovered/Resolved]
  - Lung disorder [Recovered/Resolved]
  - Molluscum contagiosum [Recovered/Resolved]
  - Herpes virus infection [Recovered/Resolved]

NARRATIVE: CASE EVENT DATE: 20100101
